FAERS Safety Report 7759606-4 (Version None)
Quarter: 2011Q3

REPORT INFORMATION
  Report Type: 
  Country: None (occurrence: None)
  Receive Date: 20110919
  Receipt Date: 20110822
  Transmission Date: 20111222
  Serious: No
  Sender: FDA-Public Use
  Company Number: US-JNJFOC-20110511332

PATIENT
  Sex: Female

DRUGS (3)
  1. INVEGA SUSTENNA [Suspect]
     Indication: SCHIZOPHRENIA
     Route: 030
     Dates: start: 20110308
  2. INVEGA SUSTENNA [Suspect]
     Route: 030
     Dates: start: 20110302
  3. INVEGA SUSTENNA [Suspect]
     Dosage: LAST DOSE
     Route: 030
     Dates: start: 20110406

REACTIONS (1)
  - URTICARIA [None]
